FAERS Safety Report 7120049-8 (Version None)
Quarter: 2010Q4

REPORT INFORMATION
  Report Type: 
  Country: None (occurrence: None)
  Receive Date: 20101123
  Receipt Date: 20101119
  Transmission Date: 20110411
  Serious: Yes (Death, Hospitalization)
  Sender: FDA-Public Use
  Company Number: IT-PFIZER INC-2010145490

PATIENT
  Age: 42 Year
  Sex: Male

DRUGS (1)
  1. SUTENT [Suspect]
     Indication: METASTATIC RENAL CELL CARCINOMA
     Dosage: 50 MG, 1X/DAY
     Route: 048
     Dates: start: 20101004

REACTIONS (3)
  - CEREBROVASCULAR ACCIDENT [None]
  - DEATH [None]
  - PYREXIA [None]
